FAERS Safety Report 11372022 (Version 3)
Quarter: 2015Q3

REPORT INFORMATION
  Report Type: Report from Study
  Country: US (occurrence: US)
  Receive Date: 20150812
  Receipt Date: 20150914
  Transmission Date: 20151125
  Serious: Yes (Hospitalization, Other)
  Sender: FDA-Public Use
  Company Number: US-JNJFOC-20150808388

PATIENT
  Age: 85 Year
  Sex: Male

DRUGS (25)
  1. ASPIRIN. [Concomitant]
     Active Substance: ASPIRIN
  2. FLUOCINONIDE. [Concomitant]
     Active Substance: FLUOCINONIDE
  3. IPRATROPIUM [Concomitant]
     Active Substance: IPRATROPIUM
  4. IMBRUVICA [Suspect]
     Active Substance: IBRUTINIB
     Indication: WALDENSTROM^S MACROGLOBULINAEMIA
     Route: 048
     Dates: start: 20141125, end: 20150729
  5. COQ10 [Concomitant]
     Active Substance: UBIDECARENONE
  6. ALENDRONATE [Concomitant]
     Active Substance: ALENDRONATE SODIUM
  7. DONEPEZIL. [Concomitant]
     Active Substance: DONEPEZIL
  8. LATANOPROST. [Concomitant]
     Active Substance: LATANOPROST
  9. BEANO [Concomitant]
     Active Substance: ASPERGILLUS NIGER .ALPHA.-GALACTOSIDASE
  10. ARICEPT [Concomitant]
     Active Substance: DONEPEZIL HYDROCHLORIDE
  11. IMBRUVICA [Suspect]
     Active Substance: IBRUTINIB
     Indication: WALDENSTROM^S MACROGLOBULINAEMIA
     Route: 048
     Dates: start: 20140427, end: 201407
  12. IMBRUVICA [Suspect]
     Active Substance: IBRUTINIB
     Indication: WALDENSTROM^S MACROGLOBULINAEMIA
     Route: 048
     Dates: start: 201407, end: 20140908
  13. ROPINIROLE. [Concomitant]
     Active Substance: ROPINIROLE
  14. POLY IRON [Concomitant]
     Active Substance: DIETARY SUPPLEMENT
  15. VITAMIN D [Concomitant]
     Active Substance: CHOLECALCIFEROL
  16. CENTRUM NOS [Concomitant]
  17. IMODIUM [Concomitant]
     Active Substance: LOPERAMIDE HYDROCHLORIDE
  18. REQUIP [Concomitant]
     Active Substance: ROPINIROLE HYDROCHLORIDE
  19. IMBRUVICA [Suspect]
     Active Substance: IBRUTINIB
     Indication: WALDENSTROM^S MACROGLOBULINAEMIA
     Route: 048
  20. FINASTERIDE. [Concomitant]
     Active Substance: FINASTERIDE
  21. GABAPENTIN. [Concomitant]
     Active Substance: GABAPENTIN
  22. NAMENDA [Concomitant]
     Active Substance: MEMANTINE HYDROCHLORIDE
  23. CALCIUM CARBONATE W/COLECALCIFEROL [Concomitant]
     Active Substance: CALCIUM CARBONATE\CHOLECALCIFEROL
  24. BACLOFEN. [Concomitant]
     Active Substance: BACLOFEN
  25. FISH OIL [Concomitant]
     Active Substance: FISH OIL

REACTIONS (13)
  - Confusional state [Not Recovered/Not Resolved]
  - Sepsis [Unknown]
  - Pneumonia [Unknown]
  - Eye haemorrhage [Recovered/Resolved]
  - Urinary tract infection [Unknown]
  - Blood pressure decreased [Unknown]
  - Atrial fibrillation [Recovered/Resolved]
  - Epistaxis [Unknown]
  - Tremor [Recovered/Resolved]
  - Pyrexia [Unknown]
  - Blood immunoglobulin M increased [Unknown]
  - Gastrointestinal haemorrhage [Unknown]
  - Gait disturbance [Unknown]

NARRATIVE: CASE EVENT DATE: 201407
